FAERS Safety Report 9340697 (Version 2)
Quarter: 2013Q3

REPORT INFORMATION
  Report Type: Spontaneous
  Country: BR (occurrence: BR)
  Receive Date: 20130610
  Receipt Date: 20130707
  Transmission Date: 20140515
  Serious: Yes (Disabling)
  Sender: FDA-Public Use
  Company Number: BR-009507513-1210BRA014538

PATIENT
  Age: 43 Year
  Sex: Female
  Weight: 53 kg

DRUGS (7)
  1. PEG-INTRON [Suspect]
     Indication: HEPATITIS C
     Dosage: 80 MICROGRAM, QW
     Route: 058
     Dates: start: 20121001
  2. VICTRELIS [Suspect]
     Indication: HEPATITIS C
     Dosage: 800 MG, Q8H
     Route: 048
     Dates: start: 20121029
  3. RIBAVIRIN [Concomitant]
     Indication: HEPATITIS C
     Dosage: UNK
  4. RIBAVIRIN [Concomitant]
     Dosage: 500 MG, BID
     Dates: start: 20121001
  5. LEVOTHYROXINE SODIUM (LEVOID) [Concomitant]
     Indication: HYPOTHYROIDISM
     Dosage: 100 MICROGRAM, QD
     Dates: start: 2009
  6. TYLENOL [Concomitant]
     Dosage: UNK, PRN
  7. NEXIUM [Concomitant]
     Indication: PROPHYLAXIS
     Dosage: 40 MG, QAM
     Dates: start: 201302

REACTIONS (20)
  - Decreased immune responsiveness [Not Recovered/Not Resolved]
  - Muscle spasms [Not Recovered/Not Resolved]
  - Abdominal distension [Not Recovered/Not Resolved]
  - Lymphocyte count decreased [Not Recovered/Not Resolved]
  - Muscular weakness [Not Recovered/Not Resolved]
  - Alopecia [Not Recovered/Not Resolved]
  - Fatigue [Not Recovered/Not Resolved]
  - Cough [Not Recovered/Not Resolved]
  - Diarrhoea [Not Recovered/Not Resolved]
  - Haemoglobin decreased [Not Recovered/Not Resolved]
  - Blood count abnormal [Not Recovered/Not Resolved]
  - Dysgeusia [Recovering/Resolving]
  - Anaemia [Unknown]
  - Hypoaesthesia [Not Recovered/Not Resolved]
  - Rash macular [Unknown]
  - Stomatitis [Not Recovered/Not Resolved]
  - Influenza like illness [Not Recovered/Not Resolved]
  - Nausea [Not Recovered/Not Resolved]
  - Abdominal pain [Not Recovered/Not Resolved]
  - Fatigue [Not Recovered/Not Resolved]
